FAERS Safety Report 8979207 (Version 5)
Quarter: 2014Q1

REPORT INFORMATION
  Report Type: Spontaneous
  Country: CA (occurrence: CA)
  Receive Date: 20121221
  Receipt Date: 20140326
  Transmission Date: 20141002
  Serious: Yes (Hospitalization, Other)
  Sender: FDA-Public Use
  Company Number: CA-AMGEN-CANSP2012082236

PATIENT
  Age: 74 Year
  Sex: Female

DRUGS (17)
  1. ENBREL [Suspect]
     Indication: RHEUMATOID ARTHRITIS
     Dosage: 50 MG, QWK
     Route: 058
     Dates: start: 20071210
  2. WARFARIN [Concomitant]
     Indication: ANTICOAGULANT THERAPY
     Dosage: 2.5 MG, QD
     Route: 048
  3. AMIODARONE [Concomitant]
     Indication: ATRIAL FIBRILLATION
     Dosage: 200 MG, QD
     Route: 048
  4. SOTALOL [Concomitant]
     Indication: ATRIAL FIBRILLATION
     Dosage: 80 MG, BID
  5. RISEDRONATE [Concomitant]
     Indication: OSTEOPOROSIS
     Dosage: 35 MG, QWK
     Route: 048
  6. VITAMIN D                          /00107901/ [Concomitant]
     Indication: OSTEOPOROSIS
     Dosage: 1000 IU, QD
     Dates: start: 20101026
  7. TYLENOL REGULAR [Concomitant]
     Indication: PAIN
     Dosage: UNK UNK, AS NEEDED
     Route: 048
  8. SYNTHROID [Concomitant]
     Indication: THYROID HORMONE REPLACEMENT THERAPY
     Dosage: 75 MUG, UNK
     Route: 048
  9. METHOTREXATE [Concomitant]
     Dosage: 20 MG, QWK
     Route: 048
     Dates: start: 1997, end: 20120924
  10. VENOFER [Concomitant]
     Indication: MINERAL SUPPLEMENTATION
     Dosage: UNK
     Route: 042
  11. TECTA [Concomitant]
     Dosage: 40 MG, QD
     Route: 048
  12. PRADAXA [Concomitant]
     Dosage: UNK
     Dates: start: 20110711
  13. COUMADINE [Concomitant]
     Dosage: UNK
  14. NORVASC [Concomitant]
     Dosage: UNK
  15. ATACAND [Concomitant]
     Dosage: UNK
  16. FUROSEMIDE [Concomitant]
     Dosage: UNK
  17. PREDNISONE [Concomitant]
     Dosage: UNK

REACTIONS (7)
  - Renal neoplasm [Recovered/Resolved]
  - Haematuria [Not Recovered/Not Resolved]
  - Leukopenia [Unknown]
  - Malaise [Recovered/Resolved]
  - Nausea [Recovered/Resolved]
  - Hypertension [Recovered/Resolved]
  - Dizziness [Recovered/Resolved]
